FAERS Safety Report 4522374-3 (Version None)
Quarter: 2004Q4

REPORT INFORMATION
  Report Type: 
  Country: None (occurrence: None)
  Receive Date: 20041209
  Receipt Date: 20041201
  Transmission Date: 20050328
  Serious: Yes (Other)
  Sender: FDA-Public Use
  Company Number: JP-GLAXOSMITHKLINE-B0359069A

PATIENT
  Age: 29 Year
  Sex: Female

DRUGS (5)
  1. PAXIL [Suspect]
     Indication: PANIC DISORDER
     Dosage: 30MG PER DAY
     Route: 048
     Dates: start: 20040608, end: 20041021
  2. DOMPERIDONE [Suspect]
     Indication: NAUSEA
     Dosage: 10MG PER DAY
     Route: 048
     Dates: start: 20040608, end: 20041021
  3. SULPIRIDE [Suspect]
     Indication: DEPRESSED MOOD
     Dosage: 25MG THREE TIMES PER DAY
     Route: 048
     Dates: start: 20040615, end: 20040727
  4. MENBIT [Concomitant]
     Route: 048
  5. RIZE [Concomitant]
     Route: 048

REACTIONS (5)
  - ALANINE AMINOTRANSFERASE INCREASED [None]
  - ASPARTATE AMINOTRANSFERASE INCREASED [None]
  - BLOOD ALKALINE PHOSPHATASE INCREASED [None]
  - GAMMA-GLUTAMYLTRANSFERASE INCREASED [None]
  - HEPATIC FUNCTION ABNORMAL [None]
